FAERS Safety Report 8319406-3 (Version None)
Quarter: 2012Q2

REPORT INFORMATION
  Report Type: 
  Country: None (occurrence: None)
  Receive Date: 20120427
  Receipt Date: 20120423
  Transmission Date: 20120825
  Serious: Yes (Death)
  Sender: FDA-Public Use
  Company Number: PHHY2012US035430

PATIENT
  Age: 53 Year
  Sex: Male

DRUGS (6)
  1. ATORVASTATIN [Suspect]
     Dosage: UNK UKN, UNK
  2. AMLODIPINE [Suspect]
     Dosage: UNK UKN, UNK
  3. BISOPROLOL FUMARATE [Suspect]
  4. HYDROCHLOROTHIAZIDE [Suspect]
     Dosage: UNK UKN, UNK
  5. VENLAFAXINE [Suspect]
     Dosage: UNK UKN, UNK
  6. BUPROPION HYDROCHLORIDE [Suspect]
     Dosage: UNK UKN, UNK

REACTIONS (1)
  - COMPLETED SUICIDE [None]
